FAERS Safety Report 6180955-8 (Version None)
Quarter: 2009Q2

REPORT INFORMATION
  Report Type: 
  Country: None (occurrence: None)
  Receive Date: 20090506
  Receipt Date: 20090424
  Transmission Date: 20091009
  Serious: Yes (Hospitalization)
  Sender: FDA-Public Use
  Company Number: US-ASTRAZENECA-2009SE01676

PATIENT
  Age: 33785 Day
  Sex: Female

DRUGS (11)
  1. ATENOLOL [Suspect]
     Indication: ATRIAL FIBRILLATION
     Route: 048
     Dates: end: 20090201
  2. TROMBYL [Suspect]
     Route: 048
     Dates: end: 20090201
  3. IMDUR [Concomitant]
     Route: 048
  4. OMEPRAZOL [Concomitant]
     Route: 048
  5. DEXTROPROPOXYPHENE NAPSILATE [Concomitant]
  6. IMODIUM [Concomitant]
     Route: 048
  7. INSULATARD [Concomitant]
  8. LACTULOSE [Concomitant]
  9. NOVOMIX [Concomitant]
  10. ACETAMINOPHEN [Concomitant]
     Route: 048
  11. PROPAVAN [Concomitant]
     Route: 048

REACTIONS (2)
  - BRADYCARDIA [None]
  - EPISTAXIS [None]
